FAERS Safety Report 10224929 (Version 2)
Quarter: 2014Q3

REPORT INFORMATION
  Report Type: Spontaneous
  Country: US (occurrence: US)
  Receive Date: 20140609
  Receipt Date: 20140925
  Transmission Date: 20150326
  Serious: Yes (Hospitalization, Other)
  Sender: FDA-Public Use
  Company Number: US-BRISTOL-MYERS SQUIBB COMPANY-20883500

PATIENT
  Age: 21 Year
  Sex: Male

DRUGS (4)
  1. TACROLIMUS. [Suspect]
     Active Substance: TACROLIMUS
  2. ACYCLOVIR. [Suspect]
     Active Substance: ACYCLOVIR
     Route: 042
  3. HYDROXYUREA. [Suspect]
     Active Substance: HYDROXYUREA
     Indication: ACUTE MYELOID LEUKAEMIA
     Dosage: 25MAR-26MAR14,1GM ?27MAR-29MAR14,2GM?HELD ON 30MAR2014?04APR-05APR20141GM?06APR2014-ONG, 1GM
     Route: 048
     Dates: start: 20140327
  4. VANCOMYCIN [Suspect]
     Active Substance: VANCOMYCIN

REACTIONS (8)
  - Tumour lysis syndrome [Unknown]
  - Pain of skin [Recovering/Resolving]
  - Sepsis [Unknown]
  - Stomatitis [Recovered/Resolved]
  - Off label use [Unknown]
  - Renal failure acute [Unknown]
  - Pancytopenia [Unknown]
  - Transaminases increased [Unknown]

NARRATIVE: CASE EVENT DATE: 20140330
